FAERS Safety Report 7100186-4 (Version None)
Quarter: 2010Q4

REPORT INFORMATION
  Report Type: 
  Country: None (occurrence: None)
  Receive Date: 20101112
  Receipt Date: 20100909
  Transmission Date: 20110411
  Serious: No
  Sender: FDA-Public Use
  Company Number: A0880524A

PATIENT
  Age: 53 Year
  Sex: Female

DRUGS (8)
  1. CARVEDILOL [Suspect]
     Indication: CARDIOMYOPATHY
     Dosage: 25MG TWICE PER DAY
     Route: 048
     Dates: start: 20090801, end: 20091201
  2. MICARDIS [Concomitant]
  3. LEVOTHYROXINE [Concomitant]
  4. MULTI-VITAMINS [Concomitant]
  5. CALCIUM [Concomitant]
  6. PRASTERONE [Concomitant]
  7. MAGNESIUM [Concomitant]
  8. CO Q10 [Concomitant]

REACTIONS (3)
  - DIZZINESS [None]
  - FATIGUE [None]
  - LABILE BLOOD PRESSURE [None]
